FAERS Safety Report 14193130 (Version 4)
Quarter: 2017Q4

REPORT INFORMATION
  Report Type: Spontaneous
  Country: JP (occurrence: JP)
  Receive Date: 20171115
  Receipt Date: 20171226
  Transmission Date: 20180321
  Serious: Yes (Life-Threatening, Hospitalization)
  Sender: FDA-Public Use
  Company Number: JP-SA-2017SA222028

PATIENT
  Sex: Male

DRUGS (15)
  1. SOLOSTAR [Suspect]
     Active Substance: DEVICE
     Indication: TYPE 2 DIABETES MELLITUS
     Dates: start: 20160822, end: 20170329
  2. FLUITRAN [Concomitant]
     Active Substance: TRICHLORMETHIAZIDE
     Route: 048
  3. KREMEZIN [Concomitant]
     Active Substance: ACTIVATED CHARCOAL
     Dosage: FINE GRANULES
     Route: 048
  4. OLMETEC [Concomitant]
     Active Substance: OLMESARTAN MEDOXOMIL
     Route: 048
  5. SIGMART [Concomitant]
     Active Substance: NICORANDIL
     Route: 048
  6. LANTUS SOLOSTAR [Suspect]
     Active Substance: INSULIN GLARGINE
     Indication: TYPE 2 DIABETES MELLITUS
     Dosage: 0-0-9 UNITS DOSE:9 UNIT(S)
     Route: 058
     Dates: start: 20160822, end: 20170329
  7. FLUITRAN [Concomitant]
     Active Substance: TRICHLORMETHIAZIDE
     Route: 048
  8. INSULIN ASPART [Suspect]
     Active Substance: INSULIN ASPART
     Indication: TYPE 2 DIABETES MELLITUS
     Dosage: 21UNIT?6-9-6 UNITS DOSE:21 UNIT(S)
     Route: 058
     Dates: start: 20100716, end: 20170329
  9. WARFARIN [Concomitant]
     Active Substance: WARFARIN
     Route: 048
  10. VASOLAN [Concomitant]
     Active Substance: VERAPAMIL HYDROCHLORIDE
     Route: 048
  11. KALIMATE [Concomitant]
     Active Substance: CALCIUM POLYSTYRENE SULFONATE
     Dosage: ORAL SOLUTION
     Route: 048
  12. TAKECAB [Concomitant]
     Active Substance: VONOPRAZAN FUMURATE
     Route: 048
  13. FEBURIC [Concomitant]
     Active Substance: FEBUXOSTAT
     Route: 048
  14. DIART [Concomitant]
     Active Substance: AZOSEMIDE
     Route: 048
  15. CLOPIDOGREL [Concomitant]
     Active Substance: CLOPIDOGREL BISULFATE
     Route: 048

REACTIONS (2)
  - Hypoglycaemic encephalopathy [Not Recovered/Not Resolved]
  - Loss of consciousness [Not Recovered/Not Resolved]

NARRATIVE: CASE EVENT DATE: 20170329
